FAERS Safety Report 10821024 (Version 3)
Quarter: 2015Q2

REPORT INFORMATION
  Report Type: Spontaneous
  Country: US (occurrence: US)
  Receive Date: 20150218
  Receipt Date: 20150501
  Transmission Date: 20150821
  Serious: No
  Sender: FDA-Public Use
  Company Number: US-ELI_LILLY_AND_COMPANY-US201501000135

PATIENT
  Age: 72 Year
  Sex: Male

DRUGS (9)
  1. ANDROGEL [Suspect]
     Active Substance: TESTOSTERONE
     Indication: BLOOD TESTOSTERONE DECREASED
     Route: 065
  2. GLIMEPIRIDE. [Concomitant]
     Active Substance: GLIMEPIRIDE
  3. LANTUS [Concomitant]
     Active Substance: INSULIN GLARGINE
  4. ACTOS [Concomitant]
     Active Substance: PIOGLITAZONE HYDROCHLORIDE
     Dosage: UNK
     Dates: end: 2014
  5. HUMALOG [Suspect]
     Active Substance: INSULIN LISPRO
     Indication: TYPE 2 DIABETES MELLITUS
     Dosage: 20 U, TID
     Route: 065
  6. MIRALAX [Concomitant]
     Active Substance: POLYETHYLENE GLYCOL 3350
  7. OSTEO BI-FLEX                      /01431201/ [Concomitant]
  8. MIDODRINE [Concomitant]
     Active Substance: MIDODRINE
  9. FISH OIL [Concomitant]
     Active Substance: FISH OIL

REACTIONS (16)
  - Femur fracture [Recovered/Resolved]
  - Visual impairment [Unknown]
  - Blood testosterone decreased [Unknown]
  - Dizziness [Not Recovered/Not Resolved]
  - Ear disorder [Unknown]
  - Weight increased [Recovered/Resolved]
  - Blood triglycerides increased [Recovered/Resolved]
  - Hypotension [Unknown]
  - Vertigo [Unknown]
  - Hair growth abnormal [Unknown]
  - Glycosylated haemoglobin increased [Unknown]
  - Blood pressure increased [Unknown]
  - Blood cholesterol increased [Unknown]
  - Oedema [Unknown]
  - Eye pain [Unknown]
  - Arthralgia [Unknown]

NARRATIVE: CASE EVENT DATE: 201309
